FAERS Safety Report 4816475-X (Version None)
Quarter: 2005Q4

REPORT INFORMATION
  Report Type: 
  Country: None (occurrence: None)
  Receive Date: 20051028
  Receipt Date: 20051019
  Transmission Date: 20060501
  Serious: Yes (Hospitalization)
  Sender: FDA-Public Use
  Company Number: DEWYE069119OCT05

PATIENT
  Age: 40 Year
  Sex: Female

DRUGS (8)
  1. RAPAMUNE [Suspect]
     Indication: PROPHYLAXIS AGAINST TRANSPLANT REJECTION
     Dosage: 0.5 ML 1X PER 1 DAY, ORAL
     Route: 048
     Dates: start: 20020701, end: 20030301
  2. PREDNISOLONE [Concomitant]
  3. CARVEDILOL [Concomitant]
  4. LASIX [Concomitant]
  5. NEPHROTRANS (SODIUM BICARBONATE) [Concomitant]
  6. CALCIUM ACETATE (CALCIUM ACETATE) [Concomitant]
  7. BONDIOL (ALFACALCIDOL) [Concomitant]
  8. REKAWAN (POTASSIUM CHLORIDE) [Concomitant]

REACTIONS (3)
  - BLOOD PARATHYROID HORMONE INCREASED [None]
  - LOW TURNOVER OSTEOPATHY [None]
  - OSTEOPOROSIS [None]
